FAERS Safety Report 6528539-3 (Version None)
Quarter: 2010Q1

REPORT INFORMATION
  Report Type: 
  Country: None (occurrence: None)
  Receive Date: 20100106
  Receipt Date: 20091223
  Transmission Date: 20100710
  Serious: Yes (Hospitalization)
  Sender: FDA-Public Use
  Company Number: US-ROCHE-677588

PATIENT
  Sex: Female

DRUGS (5)
  1. BEVACIZUMAB [Suspect]
     Indication: OVARIAN CANCER
     Route: 065
     Dates: start: 20090717, end: 20091211
  2. ERLOTINIB [Suspect]
     Indication: OVARIAN CANCER
     Route: 065
     Dates: start: 20090717, end: 20091211
  3. ERLOTINIB [Suspect]
     Route: 065
     Dates: end: 20091220
  4. CARBOPLATIN [Suspect]
     Indication: OVARIAN CANCER
     Dosage: FREQUENCY: AUC5
     Route: 065
     Dates: start: 20090626, end: 20091009
  5. TAXOL [Suspect]
     Indication: OVARIAN CANCER
     Route: 065
     Dates: start: 20090626, end: 20091009

REACTIONS (1)
  - VAGINAL LACERATION [None]
